FAERS Safety Report 22874229 (Version 3)
Quarter: 2024Q1

REPORT INFORMATION
  Report Type: Report from Study
  Country: CO (occurrence: CO)
  Receive Date: 20230828
  Receipt Date: 20240201
  Transmission Date: 20240410
  Serious: Yes (Hospitalization, Other)
  Sender: FDA-Public Use
  Company Number: CO-ABBVIE-5377849

PATIENT
  Sex: Male
  Weight: 68 kg

DRUGS (4)
  1. SKYRIZI [Suspect]
     Active Substance: RISANKIZUMAB-RZAA
     Indication: Psoriasis
     Dosage: FORM STRENGTH: 150 MG
     Route: 058
     Dates: start: 20230706, end: 20231012
  2. METFORMIN [Concomitant]
     Active Substance: METFORMIN HYDROCHLORIDE
     Indication: Diabetes mellitus
     Dosage: TIME INTERVAL: 0.33333333 DAYS: START DATE TEXT: BEFORE SKYRIZI?FREQUENCY TEXT: THREE TIMES A DAY
  3. INSULIN NOS [Concomitant]
     Active Substance: INSULIN NOS
     Indication: Diabetes mellitus
     Dosage: TIME INTERVAL: 0.33333333 DAYS: FREQUENCY TEXT: THREE TIMES A DAY?START DATE TEXT: BEFORE SKYRIZI
  4. LINAGLIPTIN [Concomitant]
     Active Substance: LINAGLIPTIN
     Indication: Diabetes mellitus
     Dosage: 5 MILLIGRAM?START DATE TEXT: BEFORE SKYRIZI

REACTIONS (9)
  - Inflammation [Not Recovered/Not Resolved]
  - Acne [Not Recovered/Not Resolved]
  - Skin laceration [Recovering/Resolving]
  - Wound complication [Not Recovered/Not Resolved]
  - Peripheral swelling [Not Recovered/Not Resolved]
  - Blister [Not Recovered/Not Resolved]
  - Onychomadesis [Not Recovered/Not Resolved]
  - Haemorrhage [Not Recovered/Not Resolved]
  - Blood glucose increased [Recovering/Resolving]

NARRATIVE: CASE EVENT DATE: 20230101
